FAERS Safety Report 9178631 (Version 2)
Quarter: 2013Q2

REPORT INFORMATION
  Report Type: Spontaneous
  Country: US (occurrence: US)
  Receive Date: 20130321
  Receipt Date: 20130507
  Transmission Date: 20140414
  Serious: No
  Sender: FDA-Public Use
  Company Number: US-009507513-1303USA009622

PATIENT
  Age: 40 Year
  Sex: Male

DRUGS (4)
  1. AZASITE [Suspect]
     Indication: OCULAR HYPERAEMIA
     Dosage: 2 GTT, BID, 1-2 WEEKS
     Route: 047
     Dates: start: 20130228, end: 20130314
  2. AZASITE [Suspect]
     Indication: EYE IRRITATION
  3. AZASITE [Suspect]
     Indication: BLEPHARITIS
  4. SYSTANE [Concomitant]
     Indication: DRY EYE
     Dosage: UNK, QID
     Route: 047

REACTIONS (6)
  - Ocular hyperaemia [Recovered/Resolved]
  - Foreign body sensation in eyes [Recovered/Resolved]
  - Eyelid exfoliation [Unknown]
  - Blepharitis [Unknown]
  - Drug dose omission [Unknown]
  - Product quality issue [Unknown]
